FAERS Safety Report 4489183-5 (Version None)
Quarter: 2004Q4

REPORT INFORMATION
  Report Type: 
  Country: None (occurrence: None)
  Receive Date: 20041029
  Receipt Date: 20041006
  Transmission Date: 20050328
  Serious: Yes (Death)
  Sender: FDA-Public Use
  Company Number: GB-JNJFOC-20041003160

PATIENT
  Age: 53 Year
  Sex: Female

DRUGS (8)
  1. DURAGESIC [Suspect]
     Route: 062
  2. DURAGESIC [Suspect]
     Route: 062
  3. DURAGESIC [Suspect]
     Route: 062
  4. DURAGESIC [Suspect]
     Indication: PAIN
     Route: 062
  5. DIAMORPHINE [Suspect]
  6. DIAMORPHINE [Suspect]
     Indication: PAIN
  7. ORAMORPH SR [Concomitant]
  8. DOMPERIDONE [Concomitant]
     Dosage: 10-20MG TDS

REACTIONS (2)
  - MEDICATION ERROR [None]
  - SEDATION [None]
